FAERS Safety Report 24423210 (Version 2)
Quarter: 2024Q4

REPORT INFORMATION
  Report Type: Spontaneous
  Country: FR (occurrence: FR)
  Receive Date: 20241010
  Receipt Date: 20241101
  Transmission Date: 20250115
  Serious: Yes (Hospitalization, Other)
  Sender: ELI LILLY AND COMPANY
  Company Number: None

PATIENT
  Age: 25 Year
  Sex: Female

DRUGS (4)
  1. FLUOXETINE HYDROCHLORIDE [Suspect]
     Active Substance: FLUOXETINE HYDROCHLORIDE
     Indication: Product used for unknown indication
     Dosage: ONE AND A HALF PACKS, UNKNOWN
     Route: 048
     Dates: start: 20240918
  2. QUETIAPINE FUMARATE [Suspect]
     Active Substance: QUETIAPINE FUMARATE
     Indication: Product used for unknown indication
     Dosage: TWO OR THREE PACKS, UNKNOWN
     Route: 048
     Dates: start: 20240918
  3. DIAZEPAM [Suspect]
     Active Substance: DIAZEPAM
     Indication: Product used for unknown indication
     Dosage: ONE AND A HALF PACKS, UNKNOWN
     Route: 048
     Dates: start: 20240318
  4. DIAZEPAM [Suspect]
     Active Substance: DIAZEPAM
     Dosage: UNK UNK, UNKNOWN
     Route: 048
     Dates: start: 20240328

REACTIONS (1)
  - Poisoning deliberate [Unknown]

NARRATIVE: CASE EVENT DATE: 20240918
